FAERS Safety Report 8394250-X (Version None)
Quarter: 2012Q2

REPORT INFORMATION
  Report Type: 
  Country: None (occurrence: None)
  Receive Date: 20120530
  Receipt Date: 20120523
  Transmission Date: 20120825
  Serious: Yes (Hospitalization, Other)
  Sender: FDA-Public Use
  Company Number: US-BAYER-2012-035375

PATIENT
  Age: 30 Year
  Sex: Female

DRUGS (11)
  1. ADVIL [Concomitant]
  2. BUPROPION HYDROCHLORIDE [Concomitant]
     Dosage: 300 MG, DAILY
     Route: 048
     Dates: start: 20090501, end: 20091001
  3. LORAZEPAM [Concomitant]
     Dosage: 0.5 MG, FOUR TIMES A DAY
     Route: 048
     Dates: start: 20090601, end: 20090901
  4. DROSPIRENONE AND ETHINYL ESTRADIOL [Suspect]
     Indication: ACNE
     Dosage: UNK
     Dates: start: 20080801, end: 20091001
  5. DROSPIRENONE AND ETHINYL ESTRADIOL [Suspect]
     Indication: CONTRACEPTION
     Dosage: UNK
     Dates: start: 20040601, end: 20091001
  6. VITAMIN C [Concomitant]
  7. YASMIN [Suspect]
     Indication: CONTRACEPTION
     Dosage: UNK
     Dates: start: 20040601, end: 20091001
  8. YASMIN [Suspect]
     Indication: ACNE
     Dosage: UNK
     Dates: start: 20040601, end: 20080701
  9. LISINOPRIL [Concomitant]
     Indication: HYPERTENSION
     Dosage: 10 MG, DAILY
     Route: 048
     Dates: start: 20050801, end: 20091001
  10. MULTI-VITAMIN [Concomitant]
     Dosage: DAILY
  11. WELLBUTRIN [Concomitant]

REACTIONS (5)
  - CHOLECYSTITIS CHRONIC [None]
  - PAIN [None]
  - EMOTIONAL DISTRESS [None]
  - CHOLECYSTITIS [None]
  - INJURY [None]
